FAERS Safety Report 13322875 (Version 1)
Quarter: 2017Q1

REPORT INFORMATION
  Report Type: Spontaneous
  Country: RU (occurrence: RU)
  Receive Date: 20170310
  Receipt Date: 20170310
  Transmission Date: 20170428
  Serious: Yes (Life-Threatening, Hospitalization)
  Sender: FDA-Public Use
  Company Number: RU-SA-2017SA039162

PATIENT
  Age: 3 Year
  Sex: Female

DRUGS (1)
  1. CLAFORAN [Suspect]
     Active Substance: CEFOTAXIME SODIUM
     Route: 030

REACTIONS (3)
  - Pallor [Unknown]
  - Muscular weakness [Unknown]
  - Altered state of consciousness [Unknown]
